FAERS Safety Report 5418707-6 (Version None)
Quarter: 2007Q3

REPORT INFORMATION
  Report Type: 
  Country: None (occurrence: None)
  Receive Date: 20070817
  Receipt Date: 20070810
  Transmission Date: 20080115
  Serious: No
  Sender: FDA-Public Use
  Company Number: JP-MERCK-0707USA04846

PATIENT
  Age: 32 Year
  Sex: Male

DRUGS (2)
  1. ZETIA [Suspect]
     Indication: HYPERLIPIDAEMIA
     Route: 048
     Dates: start: 20070714, end: 20070723
  2. ALLOPURINOL [Concomitant]
     Route: 065
     Dates: start: 20070714, end: 20070723

REACTIONS (1)
  - HYPOAESTHESIA [None]
